FAERS Safety Report 5356649-5 (Version None)
Quarter: 2007Q2

REPORT INFORMATION
  Report Type: 
  Country: None (occurrence: None)
  Receive Date: 20070612
  Receipt Date: 20070612
  Transmission Date: 20071010
  Serious: Yes (Other)
  Sender: FDA-Public Use
  Company Number: None

PATIENT
  Sex: Male
  Weight: 68.0396 kg

DRUGS (1)
  1. VIVAGLOBIN [Suspect]
     Indication: HYPOGAMMAGLOBULINAEMIA
     Dosage: 40 MG/L WEEKLY SUBCUT
     Route: 058
     Dates: start: 20060301

REACTIONS (4)
  - ABASIA [None]
  - ARTHRALGIA [None]
  - FEELING COLD [None]
  - INFUSION RELATED REACTION [None]
